FAERS Safety Report 4590245-2 (Version None)
Quarter: 2005Q1

REPORT INFORMATION
  Report Type: 
  Country: None (occurrence: None)
  Receive Date: 20050224
  Receipt Date: 20050124
  Transmission Date: 20050727
  Serious: Yes (Other)
  Sender: FDA-Public Use
  Company Number: 200510310JP

PATIENT
  Age: 63 Year
  Sex: Female

DRUGS (6)
  1. KETEK [Suspect]
     Indication: PHARYNGITIS
     Route: 048
     Dates: start: 20041012, end: 20041014
  2. PL GRAN. [Concomitant]
     Indication: COUGH
     Route: 048
     Dates: start: 20041012, end: 20041014
  3. PL GRAN. [Concomitant]
     Indication: PHARYNGOLARYNGEAL PAIN
     Route: 048
     Dates: start: 20041012, end: 20041014
  4. PL GRAN. [Concomitant]
     Indication: RHINORRHOEA
     Route: 048
     Dates: start: 20041012, end: 20041014
  5. DASEN [Concomitant]
     Indication: PRODUCTIVE COUGH
     Route: 048
     Dates: start: 20041012, end: 20041014
  6. TRANSAMIN [Concomitant]
     Indication: PHARYNGITIS
     Route: 048
     Dates: start: 20041012, end: 20041014

REACTIONS (6)
  - DEPRESSED LEVEL OF CONSCIOUSNESS [None]
  - FALL [None]
  - LACERATION [None]
  - LIMB INJURY [None]
  - NASOPHARYNGITIS [None]
  - ROAD TRAFFIC ACCIDENT [None]
